FAERS Safety Report 5120112-7 (Version None)
Quarter: 2006Q4

REPORT INFORMATION
  Report Type: 
  Country: None (occurrence: None)
  Receive Date: 20061002
  Receipt Date: 20061002
  Transmission Date: 20070319
  Serious: Yes (Hospitalization)
  Sender: FDA-Public Use
  Company Number: None

PATIENT
  Age: 57 Year
  Sex: Male
  Weight: 123 kg

DRUGS (16)
  1. LITHIUM 450 MG SA TAB [Suspect]
     Indication: BIPOLAR DISORDER
     Dosage: 450 MG BID PO
     Route: 048
  2. SYNTHROID [Concomitant]
  3. TAMSULOSIN HCL [Concomitant]
  4. FELODIPINE [Concomitant]
  5. INSULIN [Concomitant]
  6. DIAZEPAM [Concomitant]
  7. QUETIAPINE [Concomitant]
  8. LISINOPRIL [Concomitant]
  9. PROPOXYPHENE HYDROCHLORIDE [Concomitant]
  10. METFORMIN HCL [Concomitant]
  11. VIT. E [Concomitant]
  12. ZANTAC [Concomitant]
  13. MULTI-VITAMIN [Concomitant]
  14. LASIX [Concomitant]
  15. ATENOLOL [Concomitant]
  16. ASCORBIC ACID [Concomitant]

REACTIONS (6)
  - ABASIA [None]
  - ANTIPSYCHOTIC DRUG LEVEL INCREASED [None]
  - BRADYCARDIA [None]
  - CONFUSIONAL STATE [None]
  - HAEMODIALYSIS [None]
  - RENAL FAILURE ACUTE [None]
